FAERS Safety Report 14478783 (Version 8)
Quarter: 2021Q3

REPORT INFORMATION
  Report Type: Report from Study
  Country: US (occurrence: US)
  Receive Date: 20180202
  Receipt Date: 20210806
  Transmission Date: 20211014
  Serious: No
  Sender: FDA-Public Use
  Company Number: PHEH2018US004187

PATIENT
  Sex: Male

DRUGS (1)
  1. COSENTYX [Suspect]
     Active Substance: SECUKINUMAB
     Indication: PSORIASIS
     Dosage: 300 MG, QMO
     Route: 058

REACTIONS (7)
  - Pruritus [Recovering/Resolving]
  - Skin plaque [Unknown]
  - Scratch [Unknown]
  - Skin disorder [Unknown]
  - Skin haemorrhage [Unknown]
  - Psoriasis [Unknown]
  - Skin exfoliation [Unknown]
